FAERS Safety Report 5892818-3 (Version None)
Quarter: 2008Q3

REPORT INFORMATION
  Report Type: 
  Country: None (occurrence: None)
  Receive Date: 20080919
  Receipt Date: 20070731
  Transmission Date: 20090109
  Serious: Yes (Hospitalization)
  Sender: FDA-Public Use
  Company Number: 2007-00695FE

PATIENT
  Age: 73 Year
  Sex: Male

DRUGS (10)
  1. DESMOPRESSIN ACETATE [Suspect]
     Indication: DIABETES INSIPIDUS
     Dosage: 200 MCG, PO
     Route: 048
  2. AMITRIPTYLINE HYDROCHLORIDE [Suspect]
     Indication: SEDATION
     Dosage: 20 MG, PO
     Route: 048
  3. ADCAL-D3 [Concomitant]
  4. ALENDRONATE SODIUM [Concomitant]
  5. ASPIRIN [Concomitant]
  6. ATORVASTATIN [Concomitant]
  7. AZATHIOPRINE [Concomitant]
  8. METFORMIN HCL [Concomitant]
  9. PREDNISOLONE [Concomitant]
  10. TRAMADOL HCL [Concomitant]

REACTIONS (2)
  - BLOOD SODIUM DECREASED [None]
  - DRUG INTERACTION [None]
